FAERS Safety Report 25277129 (Version 4)
Quarter: 2025Q4

REPORT INFORMATION
  Report Type: Report from Study
  Country: US (occurrence: US)
  Receive Date: 20250507
  Receipt Date: 20251117
  Transmission Date: 20260117
  Serious: Yes (Other)
  Sender: ALEXION PHARMACEUTICALS
  Company Number: US-AstraZeneca-CH-00861246A

PATIENT
  Age: 86 Year
  Sex: Female
  Weight: 60.771 kg

DRUGS (3)
  1. ULTOMIRIS [Suspect]
     Active Substance: RAVULIZUMAB-CWVZ
     Indication: Myasthenia gravis
     Dosage: 3300 MILLIGRAM, Q8W
     Dates: start: 2023
  2. PYRIDOSTIGMINE [Concomitant]
     Active Substance: PYRIDOSTIGMINE
     Dosage: UNK, TID
  3. CELLCEPT [Concomitant]
     Active Substance: MYCOPHENOLATE MOFETIL
     Dosage: UNK

REACTIONS (6)
  - Cataract [Unknown]
  - Fall [Recovered/Resolved]
  - Gait disturbance [Unknown]
  - Blood pressure increased [Recovering/Resolving]
  - Hypertonic bladder [Unknown]
  - Head injury [Unknown]

NARRATIVE: CASE EVENT DATE: 20250401
